FAERS Safety Report 4388702-7 (Version None)
Quarter: 2004Q3

REPORT INFORMATION
  Report Type: 
  Country: None (occurrence: None)
  Receive Date: 20040701
  Receipt Date: 20040628
  Transmission Date: 20050211
  Serious: Yes (Other)
  Sender: FDA-Public Use
  Company Number: GB-BRISTOL-MYERS SQUIBB COMPANY-12626511

PATIENT
  Age: 45 Year
  Sex: Male
  Weight: 85 kg

DRUGS (2)
  1. ETOPOSIDE [Suspect]
     Dosage: 100-50 MG/DAY
     Dates: start: 19990101
  2. CYCLOSPORINE [Suspect]
     Dosage: 200-250 MG
     Dates: start: 20000101

REACTIONS (3)
  - HAEMOGLOBIN DECREASED [None]
  - HYPERTENSION [None]
  - NEPHROPATHY [None]
